FAERS Safety Report 17662317 (Version 17)
Quarter: 2021Q2

REPORT INFORMATION
  Report Type: Spontaneous
  Country: US (occurrence: US)
  Receive Date: 20200413
  Receipt Date: 20210423
  Transmission Date: 20210716
  Serious: No
  Sender: FDA-Public Use
  Company Number: US-BIOGEN-2020BI00860844

PATIENT
  Age: 54 Year
  Sex: Female

DRUGS (6)
  1. PLEGRIDY [Suspect]
     Active Substance: PEGINTERFERON BETA-1A
     Indication: MULTIPLE SCLEROSIS
     Route: 058
     Dates: start: 20200306, end: 20200612
  2. PLEGRIDY [Suspect]
     Active Substance: PEGINTERFERON BETA-1A
     Indication: MULTIPLE SCLEROSIS
     Route: 058
  3. PLEGRIDY [Suspect]
     Active Substance: PEGINTERFERON BETA-1A
     Route: 058
     Dates: start: 2020, end: 202008
  4. PLEGRIDY [Suspect]
     Active Substance: PEGINTERFERON BETA-1A
     Route: 058
     Dates: start: 20200306
  5. PLEGRIDY [Suspect]
     Active Substance: PEGINTERFERON BETA-1A
     Route: 065
  6. PLEGRIDY [Suspect]
     Active Substance: PEGINTERFERON BETA-1A
     Route: 065

REACTIONS (36)
  - Emotional distress [Not Recovered/Not Resolved]
  - Injection site haemorrhage [Unknown]
  - Product storage error [Unknown]
  - Product administered at inappropriate site [Unknown]
  - Oropharyngeal pain [Not Recovered/Not Resolved]
  - Frustration tolerance decreased [Unknown]
  - Injection site reaction [Unknown]
  - Renal disorder [Unknown]
  - Injection site swelling [Recovered/Resolved]
  - Chest discomfort [Not Recovered/Not Resolved]
  - Blood creatinine increased [Unknown]
  - Cardiac discomfort [Not Recovered/Not Resolved]
  - Ageusia [Unknown]
  - Idiosyncratic drug reaction [Unknown]
  - Injection site bruising [Unknown]
  - Injection site induration [Unknown]
  - Decreased appetite [Not Recovered/Not Resolved]
  - Muscle spasms [Not Recovered/Not Resolved]
  - Influenza like illness [Not Recovered/Not Resolved]
  - Asthenia [Unknown]
  - Acrochordon [Unknown]
  - Feeling cold [Unknown]
  - Injection site pain [Unknown]
  - Product dispensing error [Unknown]
  - Drug dose omission by device [Unknown]
  - Drug delivery system malfunction [Recovered/Resolved]
  - Chest pain [Not Recovered/Not Resolved]
  - Anxiety [Not Recovered/Not Resolved]
  - Hypertension [Not Recovered/Not Resolved]
  - Hunger [Unknown]
  - Chills [Not Recovered/Not Resolved]
  - Injection site pruritus [Unknown]
  - Lack of injection site rotation [Unknown]
  - Blood calcium increased [Not Recovered/Not Resolved]
  - Alopecia [Unknown]
  - Pain [Not Recovered/Not Resolved]

NARRATIVE: CASE EVENT DATE: 20200515
